FAERS Safety Report 22041207 (Version 1)
Quarter: 2023Q1

REPORT INFORMATION
  Report Type: Spontaneous
  Country: US (occurrence: None)
  Receive Date: 20230226
  Receipt Date: 20230226
  Transmission Date: 20230418
  Serious: Yes (Life-Threatening, Hospitalization)
  Sender: FDA-Public Use
  Company Number: None

PATIENT
  Age: 43 Year
  Sex: Female
  Weight: 99.79 kg

DRUGS (1)
  1. LISINOPRIL [Suspect]
     Active Substance: LISINOPRIL

REACTIONS (4)
  - Lip swelling [None]
  - Swelling face [None]
  - Urticaria [None]
  - Speech disorder [None]

NARRATIVE: CASE EVENT DATE: 20230221
